FAERS Safety Report 4554701-5 (Version None)
Quarter: 2004Q4

REPORT INFORMATION
  Report Type: 
  Country: None (occurrence: None)
  Receive Date: 20041227
  Receipt Date: 20041022
  Transmission Date: 20050328
  Serious: No
  Sender: FDA-Public Use
  Company Number: 2004-0007657

PATIENT
  Sex: Female

DRUGS (3)
  1. VIREAD [Suspect]
  2. SUSTIVA [Concomitant]
  3. LAMIVUDINE [Concomitant]

REACTIONS (1)
  - SKIN DISCOLOURATION [None]
